FAERS Safety Report 8264811-7 (Version None)
Quarter: 2012Q2

REPORT INFORMATION
  Report Type: 
  Country: None (occurrence: None)
  Receive Date: 20120406
  Receipt Date: 20120315
  Transmission Date: 20120825
  Serious: Yes (Hospitalization, Other)
  Sender: FDA-Public Use
  Company Number: US-ASTELLAS-2012US003346

PATIENT
  Sex: Female
  Weight: 56 kg

DRUGS (10)
  1. ERLOTINIB HYDROCHLORIDE [Suspect]
     Indication: PANCREATIC CARCINOMA METASTATIC
     Dosage: (150 MG,DAY 2-5, DAY 9-12 + DAY 15-26)
     Route: 048
     Dates: start: 20111223, end: 20120128
  2. GEMCITABINE HYDROCHLORIDE [Suspect]
     Indication: PANCREATIC CARCINOMA METASTATIC
     Dosage: 1000 MG/M2, DAYS 1, 8 AND 15, CYCLIC
     Route: 042
     Dates: start: 20111222, end: 20120119
  3. DILAUDID [Concomitant]
     Dosage: 1 MG, UID/QD
     Route: 042
     Dates: start: 20120105, end: 20120105
  4. CYMBALTA [Concomitant]
     Indication: PRODUCT USED FOR UNKNOWN INDICATION
     Dosage: UNK
     Route: 065
  5. FENTANYL CITRATE [Concomitant]
     Indication: PAIN
     Dosage: 100 UG, Q3D
     Route: 062
     Dates: start: 20120105
  6. RESTORIL [Concomitant]
     Indication: PRODUCT USED FOR UNKNOWN INDICATION
     Dosage: UNK
     Route: 065
  7. DILAUDID [Concomitant]
     Indication: PAIN
     Dosage: 2-3 MG Q4H PRN
     Dates: start: 20120104, end: 20120105
  8. DILAUDID [Concomitant]
     Dosage: 4 MG/KG, UID/QD
     Route: 040
     Dates: start: 20120105, end: 20120105
  9. TEMAZEPAM [Concomitant]
     Indication: PRODUCT USED FOR UNKNOWN INDICATION
     Dosage: UNK
     Route: 065
  10. PANCRELIPASE [Concomitant]
     Indication: PRODUCT USED FOR UNKNOWN INDICATION
     Dosage: UNK
     Route: 065

REACTIONS (9)
  - FLUID OVERLOAD [None]
  - DEHYDRATION [None]
  - NEOPLASM MALIGNANT [None]
  - HYPOTENSION [None]
  - ABDOMINAL PAIN [None]
  - RASH [None]
  - PAIN [None]
  - DIARRHOEA [None]
  - INAPPROPRIATE SCHEDULE OF DRUG ADMINISTRATION [None]
